FAERS Safety Report 9062436 (Version 1)
Quarter: 2013Q1

REPORT INFORMATION
  Report Type: Spontaneous
  Country: US (occurrence: US)
  Receive Date: 20130213
  Receipt Date: 20130213
  Transmission Date: 20140127
  Serious: Yes (Other)
  Sender: FDA-Public Use
  Company Number: US-ROCHE-1187698

PATIENT
  Age: 71 Year
  Sex: Female

DRUGS (5)
  1. VEMURAFENIB [Suspect]
     Indication: MALIGNANT MELANOMA STAGE IV
     Route: 065
  2. VEMURAFENIB [Suspect]
     Route: 065
  3. LEVOTHYROXINE [Concomitant]
  4. SIMVASTATIN [Concomitant]
  5. PROPRANOLOL [Concomitant]

REACTIONS (1)
  - Metaplasia [Recovering/Resolving]
